FAERS Safety Report 23292003 (Version 1)
Quarter: 2023Q4

REPORT INFORMATION
  Report Type: Spontaneous
  Country: US (occurrence: US)
  Receive Date: 20231213
  Receipt Date: 20231213
  Transmission Date: 20240109
  Serious: No
  Sender: FDA-Public Use
  Company Number: US-PERRIGO-23US013491

PATIENT
  Sex: Female

DRUGS (2)
  1. TIOCONAZOLE [Suspect]
     Active Substance: TIOCONAZOLE
     Indication: Product used for unknown indication
     Dosage: 300 MG, SINGLE
     Route: 067
  2. AZO YEAST [Suspect]
     Active Substance: EUPATORIUM PERFOLIATUM FLOWERING TOP\HOMEOPATHICS\VISCUM ALBUM LEAF
     Indication: Product used for unknown indication
     Dosage: UNKNOWN, UNKNOWN
     Route: 048

REACTIONS (2)
  - Vulvovaginal swelling [Unknown]
  - Vulvovaginal discomfort [Unknown]
